FAERS Safety Report 23064653 (Version 1)
Quarter: 2023Q4

REPORT INFORMATION
  Report Type: Spontaneous
  Country: US (occurrence: US)
  Receive Date: 20231013
  Receipt Date: 20231013
  Transmission Date: 20240110
  Serious: No
  Sender: FDA-Public Use
  Company Number: US-MYLANLABS-2023M1107278

PATIENT
  Sex: Female

DRUGS (1)
  1. NORVASC [Suspect]
     Active Substance: AMLODIPINE BESYLATE
     Indication: Hypertension
     Dosage: 10 MILLIGRAM
     Route: 065

REACTIONS (8)
  - Dizziness [Unknown]
  - Illness [Unknown]
  - Decreased appetite [Unknown]
  - Swelling [Unknown]
  - Dysphagia [Unknown]
  - Blood pressure abnormal [Unknown]
  - Asthenia [Unknown]
  - Drug ineffective [Unknown]
